FAERS Safety Report 7129289-5 (Version None)
Quarter: 2010Q4

REPORT INFORMATION
  Report Type: 
  Country: None (occurrence: None)
  Receive Date: 20101130
  Receipt Date: 20101123
  Transmission Date: 20110411
  Serious: Yes (Other)
  Sender: FDA-Public Use
  Company Number: US-PFIZER INC-2010111006

PATIENT
  Sex: Female
  Weight: 90.703 kg

DRUGS (6)
  1. LIPITOR [Suspect]
     Indication: BLOOD CHOLESTEROL INCREASED
     Dosage: 10 MG, 1X/DAY
     Route: 048
  2. TRAMADOL [Suspect]
     Indication: ARTHRALGIA
     Dosage: UNK
  3. TRAMADOL [Suspect]
     Indication: MYALGIA
  4. LEVOTHYROXINE [Concomitant]
     Indication: THYROID DISORDER
     Dosage: 50 MG, 1X/DAY
     Dates: start: 19690101
  5. PREMARIN [Concomitant]
     Indication: HYSTERECTOMY
     Dosage: UNK
     Route: 048
     Dates: start: 19970101
  6. FOSAMAX [Concomitant]
     Indication: OSTEOPOROSIS
     Dosage: 70 MG, WEEKLY
     Route: 048

REACTIONS (4)
  - ARTHRALGIA [None]
  - DIZZINESS [None]
  - MYALGIA [None]
  - NAUSEA [None]
